FAERS Safety Report 4605201-5 (Version None)
Quarter: 2005Q1

REPORT INFORMATION
  Report Type: 
  Country: None (occurrence: None)
  Receive Date: 20050310
  Receipt Date: 20050310
  Transmission Date: 20050727
  Serious: No
  Sender: FDA-Public Use
  Company Number: None

PATIENT
  Sex: Female
  Weight: 110.6777 kg

DRUGS (3)
  1. DOXORUBICIN HCL [Suspect]
     Indication: BREAST CANCER
     Dosage: 24 MG/M2 IV
     Route: 042
     Dates: start: 20041122, end: 20050228
  2. CYCLOPHOSPHAMIDE [Suspect]
     Indication: BREAST CANCER
     Dosage: 60 MG/M2 PO DAILY
     Route: 048
     Dates: start: 20041122, end: 20050106
  3. NEUPOGEN [Concomitant]

REACTIONS (2)
  - DEEP VEIN THROMBOSIS [None]
  - NECK PAIN [None]
